FAERS Safety Report 20652257 (Version 1)
Quarter: 2022Q1

REPORT INFORMATION
  Report Type: Spontaneous
  Country: US (occurrence: US)
  Receive Date: 20220330
  Receipt Date: 20220330
  Transmission Date: 20220424
  Serious: No
  Sender: FDA-Public Use
  Company Number: US-BRISTOL-MYERS SQUIBB COMPANY-2022-011152

PATIENT
  Sex: Male

DRUGS (4)
  1. NIVOLUMAB [Suspect]
     Active Substance: NIVOLUMAB
     Indication: Hodgkin^s disease
     Route: 064
  2. NIVOLUMAB [Suspect]
     Active Substance: NIVOLUMAB
     Dosage: 21 DAYS ELAPSED BETWEEN THE THIRD AND FOURTH DOSES
     Route: 064
  3. NIVOLUMAB\RELATLIMAB-RMBW [Suspect]
     Active Substance: NIVOLUMAB\RELATLIMAB-RMBW
     Indication: Hodgkin^s disease
     Route: 064
  4. NIVOLUMAB\RELATLIMAB-RMBW [Suspect]
     Active Substance: NIVOLUMAB\RELATLIMAB-RMBW
     Dosage: 21 DAYS ELAPSED BETWEEN THE THIRD AND FOURTH DOSES
     Route: 064

REACTIONS (2)
  - Low birth weight baby [Unknown]
  - Foetal exposure during pregnancy [Unknown]
